FAERS Safety Report 8831847 (Version 1)
Quarter: 2012Q4

REPORT INFORMATION
  Report Type: Report from Study
  Country: CA (occurrence: CA)
  Receive Date: 20121009
  Receipt Date: 20121009
  Transmission Date: 20130627
  Serious: Yes (Death)
  Sender: FDA-Public Use
  Company Number: CA-ROCHE-1143218

PATIENT
  Sex: Male
  Weight: 85.35 kg

DRUGS (5)
  1. AVASTIN [Suspect]
     Indication: GLIOBLASTOMA
     Route: 042
     Dates: start: 20120125, end: 20120620
  2. INDAPAMIDE [Concomitant]
     Indication: HYPERTENSION
  3. DEXAMETHASONE [Concomitant]
     Route: 065
  4. CHLORPROMAZINE [Concomitant]
     Indication: HICCUPS
     Dosage: reported as Teva-chlorpromazine
     Route: 065
  5. OMEPRAZOLE [Concomitant]

REACTIONS (1)
  - Disease progression [Fatal]
